FAERS Safety Report 15256574 (Version 2)
Quarter: 2018Q4

REPORT INFORMATION
  Report Type: Report from Study
  Country: IT (occurrence: IT)
  Receive Date: 20180808
  Receipt Date: 20181010
  Transmission Date: 20190204
  Serious: Yes (Hospitalization)
  Sender: FDA-Public Use
  Company Number: IT-PFIZER INC-2018317915

PATIENT
  Age: 40 Year
  Sex: Male

DRUGS (3)
  1. TYGACIL [Suspect]
     Active Substance: TIGECYCLINE
     Indication: HYPERPYREXIA
     Dosage: 200 MG, 1X/DAY
     Route: 042
     Dates: start: 20180615, end: 20180626
  2. MEROPENEM HIKMA [Suspect]
     Active Substance: MEROPENEM
     Indication: HYPERPYREXIA
     Dosage: 6 G, 1X/DAY
     Route: 042
     Dates: start: 20180615, end: 20180626
  3. COLIMICINA /00013203/ [Concomitant]
     Active Substance: COLISTIN SULFATE
     Dosage: UNK
     Route: 042

REACTIONS (1)
  - Hepatic enzyme increased [Recovering/Resolving]

NARRATIVE: CASE EVENT DATE: 20180626
